FAERS Safety Report 25352909 (Version 1)
Quarter: 2025Q2

REPORT INFORMATION
  Report Type: Report from Study
  Country: JP (occurrence: JP)
  Receive Date: 20250523
  Receipt Date: 20250523
  Transmission Date: 20250716
  Serious: Yes (Death, Hospitalization, Other)
  Sender: OTSUKA
  Company Number: JP-MMM-Otsuka-IO6E3NQL

PATIENT
  Age: 83 Year
  Sex: Male
  Weight: 45.9 kg

DRUGS (4)
  1. TOLVAPTAN [Suspect]
     Active Substance: TOLVAPTAN
     Indication: Inappropriate antidiuretic hormone secretion
     Dosage: 7.5 MG/DAY, ONCE DAILY, IN THE MORNING, DAILY DOSING
     Route: 048
     Dates: start: 20250114, end: 20250118
  2. TOLVAPTAN [Suspect]
     Active Substance: TOLVAPTAN
     Indication: Hyponatraemia
     Dosage: 3.75 MG/DAY, ONCE DAILY, IN THE MORNING, DAILY DOSING
     Route: 048
     Dates: start: 20250113, end: 20250113
  3. TOLVAPTAN [Suspect]
     Active Substance: TOLVAPTAN
     Dosage: 15 MG/DAY, ONCE DAILY, IN THE MORNING, DAILY DOSING
     Route: 048
     Dates: start: 20250119, end: 20250128
  4. OMEPRAZOLE SODIUM [Concomitant]
     Active Substance: OMEPRAZOLE SODIUM
     Indication: Prophylaxis
     Route: 050
     Dates: start: 20250114, end: 20250131

REACTIONS (5)
  - Interstitial lung disease [Fatal]
  - Hypertension [Fatal]
  - Fall [Unknown]
  - Cervical vertebral fracture [Not Recovered/Not Resolved]
  - Blood sodium increased [Unknown]

NARRATIVE: CASE EVENT DATE: 20250114
